FAERS Safety Report 11022790 (Version 1)
Quarter: 2015Q2

REPORT INFORMATION
  Report Type: Spontaneous
  Country: US (occurrence: US)
  Receive Date: 20150413
  Receipt Date: 20150413
  Transmission Date: 20150821
  Serious: No
  Sender: FDA-Public Use
  Company Number: US-ELI_LILLY_AND_COMPANY-US201503008691

PATIENT

DRUGS (1)
  1. STRATTERA [Suspect]
     Active Substance: ATOMOXETINE HYDROCHLORIDE
     Indication: PRODUCT USED FOR UNKNOWN INDICATION
     Dosage: 10MG, UNK
     Route: 065

REACTIONS (7)
  - Pruritus [Unknown]
  - Abdominal discomfort [Unknown]
  - Nausea [Unknown]
  - Haemorrhage [Unknown]
  - Diarrhoea [Unknown]
  - Contusion [Unknown]
  - Psychomotor hyperactivity [Unknown]
